FAERS Safety Report 7806047-7 (Version None)
Quarter: 2011Q4

REPORT INFORMATION
  Report Type: 
  Country: None (occurrence: None)
  Receive Date: 20111011
  Receipt Date: 20110930
  Transmission Date: 20120403
  Serious: Yes (Hospitalization, Other)
  Sender: FDA-Public Use
  Company Number: CA-JNJFOC-20110804628

PATIENT
  Sex: Female
  Weight: 40.4 kg

DRUGS (1)
  1. REMICADE [Suspect]
     Indication: CROHN'S DISEASE
     Route: 042
     Dates: start: 20060101

REACTIONS (3)
  - ABSCESS JAW [None]
  - DRUG HYPERSENSITIVITY [None]
  - CHRONIC OBSTRUCTIVE PULMONARY DISEASE [None]
